FAERS Safety Report 7367153-7 (Version None)
Quarter: 2011Q1

REPORT INFORMATION
  Report Type: 
  Country: None (occurrence: None)
  Receive Date: 20110310
  Receipt Date: 20110223
  Transmission Date: 20110831
  Serious: Yes (Hospitalization)
  Sender: FDA-Public Use
  Company Number: CIP11000591

PATIENT
  Age: 83 Year
  Sex: Female

DRUGS (13)
  1. EMSELEX (DARIFENACIN HYDROBROMIDE) PROLONGED-RELEASE TABLET, 7.5MG [Suspect]
     Dosage: 7.5 MG, DAILY
     Dates: end: 20110211
  2. OMEPRAZOLE [Concomitant]
  3. PERMAX /00613002/ (PERGOLIDE MESILATE) [Suspect]
     Indication: PARKINSON'S DISEASE
     Dosage: 3 MG, DAILY
  4. SELIPRAN (PRAVASTATIN SODIUM) [Concomitant]
  5. FOSAMAX [Concomitant]
  6. DIGOXIN [Suspect]
     Indication: CARDIAC FAILURE
     Dosage: 0.25 MG, 6 DAYS PER WEEK
     Dates: start: 20060301, end: 20110211
  7. LASILACTON (FUROSEMIDE, SPIRONOLACTONE) [Concomitant]
  8. SYMFONA N (GINKGO BILOBA EXTRACT) [Concomitant]
  9. LASIX [Concomitant]
  10. MAGNESIUM DIASPORAL (MAGNESIUM CITRATE) [Concomitant]
  11. ASPIRIN [Concomitant]
  12. CALCIUM SANDOZ /01725101/ (CALCIUM CARBONATE, CALCIUM GLUBIONATE, CALC [Concomitant]
  13. MADOPAR /00349201/ (BENSERAZIDE HYDROCHLORIDE, LEVODOPA) [Suspect]
     Indication: PARKINSON'S DISEASE
     Dosage: 3 DOSAGE FORMS, DAILY

REACTIONS (4)
  - BLOOD PRESSURE DECREASED [None]
  - CARDIOACTIVE DRUG LEVEL ABOVE THERAPEUTIC [None]
  - SINUS BRADYCARDIA [None]
  - CONFUSIONAL STATE [None]
